FAERS Safety Report 20325528 (Version 1)
Quarter: 2022Q1

REPORT INFORMATION
  Report Type: Other
  Country: US (occurrence: None)
  Receive Date: 20220112
  Receipt Date: 20220112
  Transmission Date: 20220423
  Serious: Yes (Hospitalization)
  Sender: FDA-Public Use
  Company Number: US-ROCHE-2997418

PATIENT
  Sex: Male

DRUGS (1)
  1. OCREVUS [Suspect]
     Active Substance: OCRELIZUMAB
     Indication: Primary progressive multiple sclerosis
     Dosage: THEN 600 MG EVERY 6 MONTHS; PREVIOUS DOT: 21/SEP/2020, NEXT DOT: 22/MAR/2021
     Route: 065
     Dates: start: 20190906

REACTIONS (1)
  - COVID-19 [Recovered/Resolved]
